FAERS Safety Report 5755234-0 (Version None)
Quarter: 2008Q2

REPORT INFORMATION
  Report Type: 
  Country: None (occurrence: None)
  Receive Date: 20080602
  Receipt Date: 20080602
  Transmission Date: 20081010
  Serious: No
  Sender: FDA-Public Use
  Company Number: None

PATIENT

DRUGS (2)
  1. HEPARIN [Suspect]
     Dates: start: 20080530, end: 20080530
  2. HEPARIN [Suspect]
     Dates: start: 20080530, end: 20080530

REACTIONS (1)
  - NO THERAPEUTIC RESPONSE [None]
